FAERS Safety Report 25202442 (Version 1)
Quarter: 2025Q2

REPORT INFORMATION
  Report Type: Report from Study
  Country: US (occurrence: US)
  Receive Date: 20250416
  Receipt Date: 20250416
  Transmission Date: 20250716
  Serious: Yes (Other)
  Sender: ABBVIE
  Company Number: US-ABBVIE-6227885

PATIENT
  Age: 64 Year
  Sex: Female

DRUGS (1)
  1. LINZESS [Suspect]
     Active Substance: LINACLOTIDE
     Indication: Irritable bowel syndrome
     Dosage: START DATE: ABOUT A YEAR AND A HALF AGO
     Route: 048
     Dates: end: 202504

REACTIONS (5)
  - Lung neoplasm malignant [Not Recovered/Not Resolved]
  - Pelvic mass [Unknown]
  - Uterine cancer [Unknown]
  - Cardiac failure [Unknown]
  - Anaemia [Unknown]

NARRATIVE: CASE EVENT DATE: 20240401
